FAERS Safety Report 15249497 (Version 1)
Quarter: 2018Q3

REPORT INFORMATION
  Report Type: Spontaneous
  Country: US (occurrence: US)
  Receive Date: 20180807
  Receipt Date: 20180807
  Transmission Date: 20181010
  Serious: No
  Sender: FDA-Public Use
  Company Number: US-PERRIGO-18US003556

PATIENT
  Age: 74 Year
  Sex: Female
  Weight: 72.56 kg

DRUGS (1)
  1. LORATADINE. [Suspect]
     Active Substance: LORATADINE
     Indication: NASAL CONGESTION
     Dosage: 10 MG, QD
     Route: 048
     Dates: start: 20180327, end: 20180329

REACTIONS (6)
  - Lacrimation increased [Recovered/Resolved]
  - Oropharyngeal pain [Recovered/Resolved]
  - Expired product administered [Recovered/Resolved]
  - Eye pruritus [Recovered/Resolved]
  - Rhinorrhoea [Recovered/Resolved]
  - Off label use [Recovered/Resolved]

NARRATIVE: CASE EVENT DATE: 20180327
